FAERS Safety Report 4872554-2 (Version None)
Quarter: 2006Q1

REPORT INFORMATION
  Report Type: 
  Country: None (occurrence: None)
  Receive Date: 20060105
  Receipt Date: 20051227
  Transmission Date: 20060701
  Serious: Yes (Death, Hospitalization)
  Sender: FDA-Public Use
  Company Number: IT-BOEHRINGER INGELHEIM PHARMACEUTICALS, INC.-2005-DE-05655GD

PATIENT
  Age: 60 Year
  Sex: Male

DRUGS (5)
  1. NEVIRAPINE [Suspect]
     Indication: HIV INFECTION
     Dates: start: 20030515, end: 20040327
  2. NEVIRAPINE [Suspect]
     Dates: start: 20010415, end: 20010724
  3. TENOFOVIR [Suspect]
     Indication: HIV INFECTION
     Dates: start: 20030515, end: 20040327
  4. STAVUDINE [Suspect]
     Indication: HIV INFECTION
     Dates: start: 20030515, end: 20031021
  5. ABACAVIR [Suspect]
     Indication: HIV INFECTION
     Dates: start: 20031021, end: 20040327

REACTIONS (16)
  - ALANINE AMINOTRANSFERASE INCREASED [None]
  - ANAEMIA [None]
  - ASPARTATE AMINOTRANSFERASE INCREASED [None]
  - BLOOD AMYLASE INCREASED [None]
  - BLOOD LACTATE DEHYDROGENASE INCREASED [None]
  - BLOOD PH DECREASED [None]
  - COMA [None]
  - DRUG INTERACTION [None]
  - DYSPNOEA [None]
  - HEART RATE DECREASED [None]
  - INTERNATIONAL NORMALISED RATIO INCREASED [None]
  - LACTIC ACIDOSIS [None]
  - MITOCHONDRIAL TOXICITY [None]
  - MULTI-ORGAN FAILURE [None]
  - NEUROPATHY PERIPHERAL [None]
  - PO2 INCREASED [None]
